FAERS Safety Report 17468095 (Version 4)
Quarter: 2020Q1

REPORT INFORMATION
  Report Type: Spontaneous
  Country: US (occurrence: US)
  Receive Date: 20200227
  Receipt Date: 20200330
  Transmission Date: 20200409
  Serious: Yes (Other)
  Sender: FDA-Public Use
  Company Number: US-PFIZER INC-2020080596

PATIENT
  Age: 59 Year
  Sex: Male
  Weight: 107 kg

DRUGS (6)
  1. SUTENT [Suspect]
     Active Substance: SUNITINIB MALATE
     Dosage: 50 MG, CYCLIC (2 WEEKS ON AND 1 WEEKS OFF)
     Route: 048
  2. SUTENT [Suspect]
     Active Substance: SUNITINIB MALATE
     Indication: MALIGNANT CONNECTIVE TISSUE NEOPLASM
     Dosage: 50 MG, CYCLIC (2 WEEKS ON AND 2 WEEKS OFF)
     Route: 048
  3. SUTENT [Suspect]
     Active Substance: SUNITINIB MALATE
     Dosage: 50 MG, 1X/DAY
     Route: 048
     Dates: end: 20200312
  4. SUTENT [Suspect]
     Active Substance: SUNITINIB MALATE
     Dosage: 37.5 MG, CYCLIC (DAILY 2 WEEKS ON 1 WEEK OFF)
     Route: 048
     Dates: start: 202003
  5. METFORMIN [Concomitant]
     Active Substance: METFORMIN HYDROCHLORIDE
     Indication: DIABETES MELLITUS
     Dosage: UNK
  6. AMLODIPINE [AMLODIPINE BESILATE] [Concomitant]
     Active Substance: AMLODIPINE BESYLATE
     Indication: HYPERTENSION
     Dosage: UNK

REACTIONS (10)
  - Malaise [Unknown]
  - Pyrexia [Unknown]
  - Bone pain [Unknown]
  - Near death experience [Unknown]
  - Breath odour [Unknown]
  - Insomnia [Unknown]
  - Decreased appetite [Unknown]
  - Fatigue [Unknown]
  - Vision blurred [Unknown]
  - Asthenia [Unknown]
